FAERS Safety Report 8919699 (Version 2)
Quarter: 2012Q4

REPORT INFORMATION
  Report Type: 
  Country: IT (occurrence: IT)
  Receive Date: 20121121
  Receipt Date: 20121127
  Transmission Date: 20130627
  Serious: Yes (Life-Threatening, Hospitalization)
  Sender: FDA-Public Use
  Company Number: IT-ELI_LILLY_AND_COMPANY-IT201211003169

PATIENT
  Age: 76 Year
  Sex: Female
  Weight: 79 kg

DRUGS (4)
  1. CYMBALTA [Suspect]
     Indication: DEPRESSION
     Dosage: 60 mg, qd
     Route: 048
     Dates: start: 20120727, end: 20121029
  2. ATORVASTATIN [Concomitant]
  3. ALLOPURINOL [Concomitant]
  4. BLOPRESID [Concomitant]

REACTIONS (1)
  - Stress cardiomyopathy [Recovered/Resolved with Sequelae]
